FAERS Safety Report 15049978 (Version 26)
Quarter: 2024Q2

REPORT INFORMATION
  Report Type: Report from Study
  Country: CA (occurrence: CA)
  Receive Date: 20180622
  Receipt Date: 20240423
  Transmission Date: 20240715
  Serious: Yes (Hospitalization, Other)
  Sender: FDA-Public Use
  Company Number: PHHY2018CA036873

PATIENT
  Age: 48 Year
  Sex: Female

DRUGS (19)
  1. COSENTYX [Suspect]
     Active Substance: SECUKINUMAB
     Indication: Ankylosing spondylitis
     Dosage: 150 MG, QMO
     Route: 058
     Dates: start: 20180228
  2. COSENTYX [Suspect]
     Active Substance: SECUKINUMAB
     Dosage: 300 MG, QMO
     Route: 058
     Dates: start: 20180228, end: 20180719
  3. COSENTYX [Suspect]
     Active Substance: SECUKINUMAB
     Dosage: 150 MG, QMO
     Route: 058
     Dates: start: 20180328
  4. COSENTYX [Suspect]
     Active Substance: SECUKINUMAB
     Dosage: 150 MG, QMO
     Route: 058
     Dates: start: 20180426
  5. COSENTYX [Suspect]
     Active Substance: SECUKINUMAB
     Dosage: 150 MG, Q2W
     Route: 058
     Dates: start: 20180525
  6. COSENTYX [Suspect]
     Active Substance: SECUKINUMAB
     Dosage: 150 MG, Q2W
     Route: 058
     Dates: start: 20180622
  7. COSENTYX [Suspect]
     Active Substance: SECUKINUMAB
     Dosage: 150 MG, Q2W
     Route: 058
     Dates: start: 20180719
  8. COSENTYX [Suspect]
     Active Substance: SECUKINUMAB
     Dosage: 150 MG, Q2W
     Route: 058
     Dates: start: 2018
  9. COSENTYX [Suspect]
     Active Substance: SECUKINUMAB
     Dosage: 300 MG, QMO
     Route: 058
     Dates: start: 20231005
  10. METHOTREXATE [Suspect]
     Active Substance: METHOTREXATE
     Indication: Product used for unknown indication
     Dosage: UNK
     Route: 065
  11. HUMIRA [Concomitant]
     Active Substance: ADALIMUMAB
     Indication: Product used for unknown indication
     Dosage: UNK
     Route: 065
  12. ENBREL [Concomitant]
     Active Substance: ETANERCEPT
     Indication: Product used for unknown indication
     Dosage: UNK
     Route: 065
  13. SIMPONI [Concomitant]
     Active Substance: GOLIMUMAB
     Indication: Product used for unknown indication
     Dosage: UNK
     Route: 065
  14. ORENCIA [Concomitant]
     Active Substance: ABATACEPT
     Indication: Product used for unknown indication
     Dosage: UNK
     Route: 065
  15. CELEBREX [Concomitant]
     Active Substance: CELECOXIB
     Indication: Product used for unknown indication
     Dosage: UNK
     Route: 065
  16. TALTZ [Concomitant]
     Active Substance: IXEKIZUMAB
     Indication: Product used for unknown indication
     Dosage: UNK
     Route: 065
  17. NAPROXEN [Concomitant]
     Active Substance: NAPROXEN
     Indication: Product used for unknown indication
     Dosage: UNK
     Route: 065
  18. NAPROXEN [Concomitant]
     Active Substance: NAPROXEN
     Dosage: 500 MG
     Route: 065
     Dates: start: 20180726
  19. ATARAX [Concomitant]
     Active Substance: HYDROXYZINE HYDROCHLORIDE
     Indication: Product used for unknown indication
     Dosage: UNK, Q4H
     Route: 065
     Dates: start: 20180719

REACTIONS (54)
  - Eczema [Unknown]
  - Dehydration [Unknown]
  - Epiploic appendagitis [Unknown]
  - Gastrointestinal inflammation [Unknown]
  - Volvulus [Unknown]
  - Inflammatory bowel disease [Unknown]
  - Pharyngeal haemorrhage [Unknown]
  - Diverticulitis [Unknown]
  - Hypertension [Unknown]
  - Abdominal distension [Not Recovered/Not Resolved]
  - Abdominal discomfort [Not Recovered/Not Resolved]
  - Dyspepsia [Not Recovered/Not Resolved]
  - Nausea [Unknown]
  - Dizziness [Unknown]
  - Malaise [Unknown]
  - Oropharyngeal pain [Recovering/Resolving]
  - Productive cough [Unknown]
  - Dysphonia [Unknown]
  - Headache [Unknown]
  - Fatigue [Not Recovered/Not Resolved]
  - Pain in extremity [Unknown]
  - Pruritus [Unknown]
  - Skin lesion [Not Recovered/Not Resolved]
  - Tinea pedis [Unknown]
  - Respiratory disorder [Unknown]
  - Joint swelling [Unknown]
  - Abdominal pain [Not Recovered/Not Resolved]
  - Dysuria [Not Recovered/Not Resolved]
  - Anxiety [Unknown]
  - Induration [Unknown]
  - Erythema [Recovered/Resolved]
  - Insomnia [Unknown]
  - Groin pain [Unknown]
  - Blood urine present [Not Recovered/Not Resolved]
  - Large intestine polyp [Unknown]
  - Abdominal pain upper [Unknown]
  - Abdominal rigidity [Unknown]
  - Sacral pain [Unknown]
  - Peripheral swelling [Unknown]
  - Injection site reaction [Unknown]
  - Injection site induration [Unknown]
  - Injection site erythema [Unknown]
  - Arthralgia [Unknown]
  - Muscular weakness [Unknown]
  - Formication [Unknown]
  - Paraesthesia [Unknown]
  - Drug intolerance [Unknown]
  - General physical health deterioration [Unknown]
  - Inappropriate schedule of product administration [Unknown]
  - Drug ineffective [Unknown]
  - Asthenopia [Unknown]
  - Decreased immune responsiveness [Unknown]
  - Herpes zoster [Unknown]
  - Oral herpes [Unknown]

NARRATIVE: CASE EVENT DATE: 20180101
